FAERS Safety Report 23125128 (Version 1)
Quarter: 2023Q4

REPORT INFORMATION
  Report Type: Spontaneous
  Country: US (occurrence: US)
  Receive Date: 20231030
  Receipt Date: 20231030
  Transmission Date: 20240109
  Serious: No
  Sender: FDA-Public Use
  Company Number: US-GSKCCFUS-Case-01837228_AE-102700

PATIENT
  Sex: Female

DRUGS (3)
  1. NUCALA [Suspect]
     Active Substance: MEPOLIZUMAB
     Indication: Asthma
     Dosage: 100 MG, CYC
     Route: 058
     Dates: start: 20230912
  2. NUCALA [Suspect]
     Active Substance: MEPOLIZUMAB
     Indication: Chronic obstructive pulmonary disease
     Dosage: 100 MG/ML
     Route: 058
     Dates: start: 20231010
  3. GABAPENTIN [Concomitant]
     Active Substance: GABAPENTIN
     Indication: Back pain
     Dosage: UNK

REACTIONS (22)
  - Headache [Unknown]
  - Flushing [Unknown]
  - Erythema [Unknown]
  - Pain [Unknown]
  - Chills [Unknown]
  - Hyperhidrosis [Unknown]
  - Insomnia [Unknown]
  - Oropharyngeal pain [Unknown]
  - Dysphagia [Unknown]
  - Bedridden [Unknown]
  - Illness [Unknown]
  - Paraesthesia [Unknown]
  - Cough [Unknown]
  - Vomiting [Unknown]
  - Chest pain [Unknown]
  - Dizziness [Unknown]
  - Productive cough [Unknown]
  - Dyspnoea [Unknown]
  - Night sweats [Unknown]
  - Hypersensitivity [Not Recovered/Not Resolved]
  - Gait inability [Unknown]
  - Inappropriate schedule of product administration [Unknown]

NARRATIVE: CASE EVENT DATE: 20230101
